FAERS Safety Report 7854131 (Version 2)
Quarter: 2012Q4

REPORT INFORMATION
  Report Type: 
  Country: US (occurrence: US)
  Receive Date: 20110314
  Receipt Date: 20120920
  Transmission Date: 20130627
  Serious: No
  Sender: FDA-Public Use
  Company Number: US-BAYER-2011-019650

PATIENT
  Age: 27 Year
  Sex: Female
  Weight: 61.22 kg

DRUGS (1)
  1. MIRENA [Suspect]
     Indication: CONTRACEPTION
     Dosage: 20 ?g, CONT
     Route: 015
     Dates: start: 201002

REACTIONS (6)
  - Amenorrhoea [None]
  - Loss of libido [None]
  - Pregnancy test positive [None]
  - Nausea [None]
  - Abdominal distension [None]
  - Abnormal weight gain [None]
